FAERS Safety Report 15241378 (Version 1)
Quarter: 2018Q3

REPORT INFORMATION
  Report Type: Spontaneous
  Country: ES (occurrence: ES)
  Receive Date: 20180805
  Receipt Date: 20180805
  Transmission Date: 20181010
  Serious: Yes (Hospitalization)
  Sender: FDA-Public Use
  Company Number: ES-CONCORDIA PHARMACEUTICALS INC.-E2B_00015292

PATIENT
  Age: 88 Year
  Sex: Female

DRUGS (1)
  1. DIGOXIN. [Suspect]
     Active Substance: DIGOXIN
     Indication: ATRIAL FIBRILLATION
     Dates: start: 20161017, end: 20180519

REACTIONS (3)
  - Nausea [Recovered/Resolved]
  - Bradycardia [Recovered/Resolved]
  - Toxicity to various agents [Recovered/Resolved]

NARRATIVE: CASE EVENT DATE: 20180515
